FAERS Safety Report 10014040 (Version 2)
Quarter: 2014Q1

REPORT INFORMATION
  Report Type: Spontaneous
  Country: JP (occurrence: JP)
  Receive Date: 20140317
  Receipt Date: 20140318
  Transmission Date: 20141002
  Serious: Yes (Hospitalization)
  Sender: FDA-Public Use
  Company Number: PHHY2014JP029006

PATIENT
  Age: 22 Week
  Sex: Male

DRUGS (1)
  1. DIGOXIN [Suspect]
     Indication: LEFT VENTRICULAR DYSFUNCTION
     Route: 064

REACTIONS (2)
  - Cardiopulmonary failure [Unknown]
  - Foetal exposure during pregnancy [Unknown]
